FAERS Safety Report 7809736-3 (Version None)
Quarter: 2011Q4

REPORT INFORMATION
  Report Type: 
  Country: None (occurrence: None)
  Receive Date: 20111007
  Receipt Date: 20110922
  Transmission Date: 20120403
  Serious: Yes (Life-Threatening, Disabling)
  Sender: FDA-Public Use
  Company Number: TUK2011A00110

PATIENT
  Age: 66 Year
  Sex: Male

DRUGS (10)
  1. METFORMIN HCL [Concomitant]
  2. CLENIL MODULITE (BECLOMETASONE DIPROPIONATE) [Concomitant]
  3. BECLOMETHASONE DIPROPIONATE [Concomitant]
  4. ACTOS [Suspect]
     Indication: PRODUCT USED FOR UNKNOWN INDICATION
     Dosage: 15 MG (15 MG,1 IN 1 D) ; 45 MG (45 MG,1 IN 1 D)
     Dates: start: 20101103, end: 20110513
  5. ACTOS [Suspect]
     Indication: PRODUCT USED FOR UNKNOWN INDICATION
     Dosage: 15 MG (15 MG,1 IN 1 D) ; 45 MG (45 MG,1 IN 1 D)
     Dates: start: 20110518, end: 20110713
  6. ASPIRIN [Concomitant]
  7. ACETAMINOPHEN [Concomitant]
  8. RAMIPRIL [Concomitant]
  9. SIMVASTATIN [Concomitant]
  10. VOLUMATIC [Concomitant]

REACTIONS (3)
  - CARDIAC FAILURE ACUTE [None]
  - BLOOD CREATININE INCREASED [None]
  - ACUTE LEFT VENTRICULAR FAILURE [None]
